FAERS Safety Report 13466651 (Version 1)
Quarter: 2017Q2

REPORT INFORMATION
  Report Type: Spontaneous
  Country: US (occurrence: US)
  Receive Date: 20170421
  Receipt Date: 20170421
  Transmission Date: 20170830
  Serious: No
  Sender: FDA-Public Use
  Company Number: US-TEVA-725574ACC

PATIENT

DRUGS (1)
  1. IBANDTAB-A [Suspect]
     Active Substance: IBANDRONIC ACID
     Route: 065

REACTIONS (4)
  - Impaired healing [Unknown]
  - Pain [None]
  - Myalgia [None]
  - Wound [Unknown]
